FAERS Safety Report 8994418 (Version 1)
Quarter: 2012Q4

REPORT INFORMATION
  Report Type: Spontaneous
  Country: US (occurrence: None)
  Receive Date: 20121228
  Receipt Date: 20121228
  Transmission Date: 20130627
  Serious: Yes (Hospitalization)
  Sender: FDA-Public Use
  Company Number: None

PATIENT
  Age: 60 Year
  Sex: Male
  Weight: 92.5 kg

DRUGS (2)
  1. TICAGRELOR [Suspect]
     Indication: CORONARY STENT PLACEMENT
     Route: 048
     Dates: start: 20120121
  2. ASPIRIN [Suspect]
     Indication: CORONARY STENT PLACEMENT
     Route: 048

REACTIONS (5)
  - Anaemia [None]
  - Gastric haemorrhage [None]
  - Orthostatic hypotension [None]
  - Erosive oesophagitis [None]
  - Gastrointestinal haemorrhage [None]
